FAERS Safety Report 12423248 (Version 1)
Quarter: 2016Q2

REPORT INFORMATION
  Report Type: Spontaneous
  Country: US (occurrence: None)
  Receive Date: 20160531
  Receipt Date: 20160531
  Transmission Date: 20160815
  Serious: Yes (Hospitalization)
  Sender: FDA-Public Use
  Company Number: None

PATIENT
  Age: 63 Year
  Weight: 86.18 kg

DRUGS (11)
  1. CITRUCEL [Concomitant]
     Active Substance: METHYLCELLULOSE (4000 MPA.S)
  2. HYDROCHLOROTHIAZIDE VALSARTAN [Concomitant]
     Active Substance: HYDROCHLOROTHIAZIDE\VALSARTAN
  3. MULTIVITAMIN [Concomitant]
     Active Substance: VITAMINS
  4. PROBIOTIC [Concomitant]
     Active Substance: PROBIOTICS NOS
  5. GABAPENTIN. [Concomitant]
     Active Substance: GABAPENTIN
  6. SIMVASTATIN. [Concomitant]
     Active Substance: SIMVASTATIN
  7. TRAMADOL. [Concomitant]
     Active Substance: TRAMADOL
  8. METOPROLOL TARTRATE. [Concomitant]
     Active Substance: METOPROLOL TARTRATE
  9. WARFARIN [Concomitant]
     Active Substance: WARFARIN
  10. CEFUROXIME AXETIL. [Suspect]
     Active Substance: CEFUROXIME AXETIL
     Indication: URINARY TRACT INFECTION
     Route: 048
     Dates: start: 20160413, end: 20160422
  11. STOOL SOFTENER [Concomitant]
     Active Substance: DOCUSATE CALCIUM

REACTIONS (3)
  - International normalised ratio increased [None]
  - Drug interaction [None]
  - Haematuria [None]

NARRATIVE: CASE EVENT DATE: 20160425
